FAERS Safety Report 11849170 (Version 1)
Quarter: 2015Q4

REPORT INFORMATION
  Report Type: Spontaneous
  Country: US (occurrence: US)
  Receive Date: 20151218
  Receipt Date: 20151218
  Transmission Date: 20160305
  Serious: Yes (Hospitalization)
  Sender: FDA-Public Use
  Company Number: US-ASTRAZENECA-2015SF26486

PATIENT
  Age: 78 Year
  Sex: Female

DRUGS (6)
  1. VALIUM [Concomitant]
     Active Substance: DIAZEPAM
     Indication: ABDOMINAL DISCOMFORT
  2. NORCO [Suspect]
     Active Substance: ACETAMINOPHEN\HYDROCODONE BITARTRATE
     Indication: PAIN
     Route: 065
  3. BENICAR [Concomitant]
     Active Substance: OLMESARTAN MEDOXOMIL
     Indication: BLOOD PRESSURE ABNORMAL
  4. CRESTOR [Suspect]
     Active Substance: ROSUVASTATIN CALCIUM
     Indication: BLOOD CHOLESTEROL ABNORMAL
     Route: 048
  5. MOVANTIK [Suspect]
     Active Substance: NALOXEGOL OXALATE
     Indication: CONSTIPATION
     Route: 048
  6. ERYTHROMYCIN. [Concomitant]
     Active Substance: ERYTHROMYCIN

REACTIONS (11)
  - Pain [Unknown]
  - Nausea [Unknown]
  - Arthritis [Unknown]
  - Ulcer [Not Recovered/Not Resolved]
  - Blood sodium decreased [Unknown]
  - Malaise [Unknown]
  - Gastric disorder [Unknown]
  - Constipation [Unknown]
  - Pneumonia [Unknown]
  - Intentional product misuse [Unknown]
  - Emphysema [Unknown]

NARRATIVE: CASE EVENT DATE: 2010
